FAERS Safety Report 24622485 (Version 2)
Quarter: 2025Q1

REPORT INFORMATION
  Report Type: Spontaneous
  Country: GB (occurrence: GB)
  Receive Date: 20241115
  Receipt Date: 20250318
  Transmission Date: 20250408
  Serious: Yes (Other)
  Sender: ROCHE
  Company Number: None

PATIENT
  Sex: Female

DRUGS (3)
  1. KADCYLA [Suspect]
     Active Substance: ADO-TRASTUZUMAB EMTANSINE
     Indication: Product used for unknown indication
     Route: 065
  2. ENHERTU [Suspect]
     Active Substance: FAM-TRASTUZUMAB DERUXTECAN-NXKI
     Indication: Breast cancer metastatic
     Route: 065
  3. ENHERTU [Suspect]
     Active Substance: FAM-TRASTUZUMAB DERUXTECAN-NXKI
     Route: 065
     Dates: end: 20250108

REACTIONS (15)
  - Cerebellar cyst [Unknown]
  - Feeling abnormal [Unknown]
  - Catheter site infection [Unknown]
  - Ear infection [Unknown]
  - Soft tissue injury [Unknown]
  - Sternal injury [Unknown]
  - Head discomfort [Unknown]
  - Insomnia [Unknown]
  - Balance disorder [Unknown]
  - Arthralgia [Recovering/Resolving]
  - Pain in extremity [Unknown]
  - Cerebral haemorrhage [Unknown]
  - Tumour marker increased [Unknown]
  - Metastases to lymph nodes [Unknown]
  - Disease progression [Unknown]

NARRATIVE: CASE EVENT DATE: 20240725
